FAERS Safety Report 6086901-X (Version None)
Quarter: 2009Q1

REPORT INFORMATION
  Report Type: 
  Country: None (occurrence: None)
  Receive Date: 20090217
  Receipt Date: 20081021
  Transmission Date: 20090719
  Serious: Yes (Death, Other)
  Sender: FDA-Public Use
  Company Number: MC200800498

PATIENT
  Age: 86 Year
  Sex: Male
  Weight: 74 kg

DRUGS (2)
  1. ANGIOMAX [Suspect]
     Indication: PERCUTANEOUS CORONARY INTERVENTION
     Dosage: 11 ML, HR, BOLUS, INTRAVENOUS : 26 ML, HR, INTRAVENOUS
     Route: 040
     Dates: start: 20081016, end: 20081016
  2. ANGIOMAX [Suspect]
     Indication: STENT PLACEMENT
     Dosage: 11 ML, HR, BOLUS, INTRAVENOUS : 26 ML, HR, INTRAVENOUS
     Route: 040
     Dates: start: 20081016, end: 20081016

REACTIONS (2)
  - HYPOTENSION [None]
  - THROMBOSIS [None]
